FAERS Safety Report 19722920 (Version 1)
Quarter: 2021Q3

REPORT INFORMATION
  Report Type: Spontaneous
  Country: DE (occurrence: DE)
  Receive Date: 20210820
  Receipt Date: 20210820
  Transmission Date: 20211014
  Serious: Yes (Death, Life-Threatening, Other)
  Sender: FDA-Public Use
  Company Number: DE-AUROBINDO PHARMA LTD, UK-AUR-APL-2014-06373

PATIENT
  Age: 74 Year
  Sex: Female

DRUGS (6)
  1. KALINOR [Concomitant]
     Indication: PRODUCT USED FOR UNKNOWN INDICATION
     Dosage: 1 DF, DAILY
     Route: 048
     Dates: start: 20140315, end: 20140320
  2. RAMIPRIL 5MG [Suspect]
     Active Substance: RAMIPRIL
     Indication: PRODUCT USED FOR UNKNOWN INDICATION
     Dosage: 5 MILLIGRAM, DAILY
     Route: 048
     Dates: end: 20140320
  3. TAVOR [Concomitant]
     Indication: PRODUCT USED FOR UNKNOWN INDICATION
     Dosage: 3 MILLIGRAM, DAILY
     Route: 048
     Dates: start: 20140304, end: 20140311
  4. TAVOR [Concomitant]
     Dosage: 4 MILLIGRAM, DAILY
     Route: 048
     Dates: start: 20140312, end: 20140320
  5. METFORMIN [Concomitant]
     Active Substance: METFORMIN HYDROCHLORIDE
     Indication: PRODUCT USED FOR UNKNOWN INDICATION
     Dosage: 1000 MG, DAILY
     Route: 048
     Dates: end: 20140320
  6. L?THYROXIN [Concomitant]
     Active Substance: LEVOTHYROXINE SODIUM
     Indication: PRODUCT USED FOR UNKNOWN INDICATION
     Dosage: 100 MICROGARM DAILY
     Route: 048
     Dates: end: 20140320

REACTIONS (13)
  - Loss of consciousness [Unknown]
  - Musculoskeletal stiffness [Unknown]
  - Hepatic enzyme increased [Unknown]
  - Myocardial infarction [Fatal]
  - Bundle branch block [Unknown]
  - Stress [Unknown]
  - Shock [Unknown]
  - Transaminases increased [Unknown]
  - Spinal disorder [Unknown]
  - Urinary incontinence [Unknown]
  - Myosclerosis [Unknown]
  - Blood creatine phosphokinase increased [Unknown]
  - Delusion [Unknown]

NARRATIVE: CASE EVENT DATE: 20140310
